FAERS Safety Report 9026553 (Version 2)
Quarter: 2013Q1

REPORT INFORMATION
  Report Type: Spontaneous
  Country: US (occurrence: US)
  Receive Date: 20130123
  Receipt Date: 20130131
  Transmission Date: 20140127
  Serious: No
  Sender: FDA-Public Use
  Company Number: US-009507513-1301USA009187

PATIENT
  Sex: Female

DRUGS (2)
  1. TRUSOPT [Suspect]
     Indication: INTRAOCULAR PRESSURE TEST ABNORMAL
     Dosage: UNK
     Route: 031
     Dates: start: 20121025, end: 20130101
  2. DYAZIDE [Concomitant]

REACTIONS (4)
  - Eye swelling [Recovered/Resolved]
  - Erythema [Recovered/Resolved]
  - Fatigue [Recovered/Resolved]
  - Asthenia [Recovered/Resolved]
